FAERS Safety Report 9204652 (Version 2)
Quarter: 2013Q2

REPORT INFORMATION
  Report Type: Spontaneous
  Country: US (occurrence: None)
  Receive Date: 20130329
  Receipt Date: 20130411
  Transmission Date: 20140414
  Serious: Yes (Hospitalization)
  Sender: FDA-Public Use
  Company Number: JPI-P-030898

PATIENT
  Age: 42 Year
  Sex: Male

DRUGS (1)
  1. XYREM [Suspect]
     Indication: INSOMNIA
     Dosage: 6GM (3GM, 2 IN 1D), ORAL
     Route: 048
     Dates: start: 20110318

REACTIONS (3)
  - Hospitalisation [None]
  - Fall [None]
  - Upper limb fracture [None]
